FAERS Safety Report 11323996 (Version 2)
Quarter: 2016Q2

REPORT INFORMATION
  Report Type: Spontaneous
  Country: US (occurrence: US)
  Receive Date: 20150730
  Receipt Date: 20160504
  Transmission Date: 20160815
  Serious: No
  Sender: FDA-Public Use
  Company Number: US-ELI_LILLY_AND_COMPANY-US201507010305

PATIENT
  Sex: Male

DRUGS (4)
  1. HUMALOG MIX75/25 [Suspect]
     Active Substance: INSULIN LISPRO
     Dosage: 20 U, BID
     Route: 065
     Dates: start: 201512
  2. METFORMIN [Concomitant]
     Active Substance: METFORMIN HYDROCHLORIDE
     Dosage: UNK UNK, UNKNOWN
     Route: 065
  3. GLIPERIDE [Concomitant]
     Active Substance: GLIMEPIRIDE
     Dosage: UNK UNK, UNKNOWN
     Route: 065
  4. HUMALOG MIX75/25 [Suspect]
     Active Substance: INSULIN LISPRO
     Indication: TYPE 2 DIABETES MELLITUS
     Dosage: 14 U, QD
     Route: 065
     Dates: start: 2013, end: 201512

REACTIONS (3)
  - Endocrine pancreatic disorder [Unknown]
  - Underdose [Recovered/Resolved]
  - Blood glucose abnormal [Unknown]
